FAERS Safety Report 6902317-5 (Version None)
Quarter: 2010Q3

REPORT INFORMATION
  Report Type: 
  Country: None (occurrence: None)
  Receive Date: 20100803
  Receipt Date: 20080513
  Transmission Date: 20110219
  Serious: No
  Sender: FDA-Public Use
  Company Number: US-PFIZER INC-2008009854

PATIENT
  Sex: Female
  Weight: 72.57 kg

DRUGS (6)
  1. LYRICA [Suspect]
     Indication: FIBROMYALGIA
     Dates: start: 20071101
  2. TRAZODONE HCL [Suspect]
     Indication: FIBROMYALGIA
  3. FLEXERIL [Suspect]
     Indication: FIBROMYALGIA
  4. NAPROSYN [Concomitant]
  5. CHEMOTHERAPY NOS [Concomitant]
  6. EVISTA [Concomitant]

REACTIONS (5)
  - DRUG INEFFECTIVE [None]
  - HOT FLUSH [None]
  - INSOMNIA [None]
  - WEIGHT DECREASED [None]
  - WEIGHT INCREASED [None]
